FAERS Safety Report 11270658 (Version 2)
Quarter: 2015Q3

REPORT INFORMATION
  Report Type: Spontaneous
  Country: US (occurrence: US)
  Receive Date: 20150714
  Receipt Date: 20150716
  Transmission Date: 20151125
  Serious: No
  Sender: FDA-Public Use
  Company Number: US-PFIZER INC-2015232464

PATIENT
  Age: 48 Year
  Sex: Female
  Weight: 117 kg

DRUGS (8)
  1. LYRICA [Suspect]
     Active Substance: PREGABALIN
     Indication: DIABETIC NEUROPATHY
  2. LYRICA [Suspect]
     Active Substance: PREGABALIN
     Indication: FIBROMYALGIA
     Dosage: 75 MG, 2X/DAY
     Route: 048
     Dates: start: 201501, end: 201504
  3. METFORMIN [Concomitant]
     Active Substance: METFORMIN HYDROCHLORIDE
     Indication: DIABETES MELLITUS
     Dosage: 600 MG, 2X/DAY
     Route: 048
  4. ONDANSETRON [Concomitant]
     Active Substance: ONDANSETRON
     Indication: NAUSEA
  5. MELOXICAM. [Concomitant]
     Active Substance: MELOXICAM
     Indication: FIBROMYALGIA
     Dosage: 7.5 MG, TWICE A DAY OR AS NEEDED
     Route: 048
  6. METOPROLOL [Concomitant]
     Active Substance: METOPROLOL
     Indication: HYPERTENSION
     Dosage: 50 MG, 1X/DAY
     Route: 048
  7. JANUMET [Concomitant]
     Active Substance: METFORMIN HYDROCHLORIDE\SITAGLIPTIN PHOSPHATE
     Indication: DIABETES MELLITUS
     Dosage: 100 MG, 1X/DAY
     Route: 048
  8. JANUVIA [Concomitant]
     Active Substance: SITAGLIPTIN PHOSPHATE
     Indication: DIABETES MELLITUS
     Dosage: 100 MG, 1X/DAY
     Route: 048

REACTIONS (5)
  - Dysstasia [Not Recovered/Not Resolved]
  - Insomnia [Not Recovered/Not Resolved]
  - Fatigue [Not Recovered/Not Resolved]
  - Bedridden [Not Recovered/Not Resolved]
  - Pain [Not Recovered/Not Resolved]

NARRATIVE: CASE EVENT DATE: 2015
